FAERS Safety Report 24982701 (Version 1)
Quarter: 2025Q1

REPORT INFORMATION
  Report Type: Spontaneous
  Country: AU (occurrence: AU)
  Receive Date: 20250218
  Receipt Date: 20250218
  Transmission Date: 20250409
  Serious: Yes (Death, Hospitalization, Other)
  Sender: ABBVIE
  Company Number: AU-ABBVIE-6138729

PATIENT
  Age: 77 Year
  Sex: Male

DRUGS (3)
  1. SILODOSIN [Suspect]
     Active Substance: SILODOSIN
     Indication: Product used for unknown indication
     Dosage: 8 MILLIGRAM, QD
     Route: 065
  2. AMOXICILLIN\CLAVULANATE POTASSIUM [Suspect]
     Active Substance: AMOXICILLIN\CLAVULANATE POTASSIUM
     Indication: Pneumonia
     Dosage: 875 MILLIGRAM, BID
     Route: 065
  3. ACETAMINOPHEN [Concomitant]
     Active Substance: ACETAMINOPHEN
     Indication: Product used for unknown indication

REACTIONS (11)
  - Pneumonia [Fatal]
  - Myocardial infarction [Fatal]
  - Drug interaction [Fatal]
  - Coma [Fatal]
  - Asthenia [Fatal]
  - Fall [Fatal]
  - Heart rate irregular [Fatal]
  - Diarrhoea [Fatal]
  - Dyspnoea [Fatal]
  - Dizziness [Fatal]
  - Hypotension [Fatal]
